FAERS Safety Report 17609924 (Version 1)
Quarter: 2020Q1

REPORT INFORMATION
  Report Type: Spontaneous
  Country: US (occurrence: US)
  Receive Date: 20200331
  Receipt Date: 20200331
  Transmission Date: 20200409
  Serious: Yes (Hospitalization)
  Sender: FDA-Public Use
  Company Number: None

PATIENT
  Age: 67 Year
  Sex: Female

DRUGS (1)
  1. RIZATRIPTAN. [Suspect]
     Active Substance: RIZATRIPTAN
     Route: 048
     Dates: start: 20200321, end: 20200323

REACTIONS (2)
  - Onychomadesis [None]
  - Alopecia [None]

NARRATIVE: CASE EVENT DATE: 20200323
